FAERS Safety Report 21297046 (Version 1)
Quarter: 2022Q3

REPORT INFORMATION
  Report Type: Spontaneous
  Country: FR (occurrence: FR)
  Receive Date: 20220906
  Receipt Date: 20220906
  Transmission Date: 20221027
  Serious: Yes (Hospitalization)
  Sender: FDA-Public Use
  Company Number: None

PATIENT
  Age: 74 Year
  Sex: Male

DRUGS (3)
  1. TRAMADOL HYDROCHLORIDE [Suspect]
     Active Substance: TRAMADOL HYDROCHLORIDE
     Indication: Pain in extremity
     Dosage: UNKNOWN , CHLORHYDRATE DE TRAMADOL , DURATION : 1 DAY
     Dates: start: 20201109, end: 20201109
  2. TRAMADOL HYDROCHLORIDE [Suspect]
     Active Substance: TRAMADOL HYDROCHLORIDE
     Dosage: UNKNOWN , CHLORHYDRATE DE TRAMADOL , DURATION : 1 DAY
     Dates: start: 20201113, end: 20201113
  3. MORPHINE [Suspect]
     Active Substance: MORPHINE
     Indication: Pain in extremity
     Dosage: UNIT DOSE : 20 MG , FREQUENCY TIME :12 HOURS   , DURATION : 1 DAY
     Dates: start: 20201113, end: 20201113

REACTIONS (1)
  - Post stroke epilepsy [Recovered/Resolved]

NARRATIVE: CASE EVENT DATE: 20201115
